FAERS Safety Report 6161757-5 (Version None)
Quarter: 2009Q2

REPORT INFORMATION
  Report Type: 
  Country: None (occurrence: None)
  Receive Date: 20090421
  Receipt Date: 20090408
  Transmission Date: 20091009
  Serious: Yes (Other)
  Sender: FDA-Public Use
  Company Number: US-ROCHE-626575

PATIENT
  Sex: Female

DRUGS (3)
  1. BONIVA [Suspect]
     Indication: OSTEOPOROSIS
     Route: 048
     Dates: start: 20070101
  2. ATENOL [Concomitant]
     Indication: BLOOD PRESSURE INCREASED
     Dates: start: 20060101
  3. ZYRTEC [Concomitant]
     Dosage: OVER THE COUNTER ZYRTEC

REACTIONS (4)
  - NEPHROLITHIASIS [None]
  - OEDEMA MOUTH [None]
  - ORAL PAIN [None]
  - TOOTH INFECTION [None]
